FAERS Safety Report 23934624 (Version 1)
Quarter: 2024Q2

REPORT INFORMATION
  Report Type: Report from Study
  Country: IN (occurrence: IN)
  Receive Date: 20240603
  Receipt Date: 20240603
  Transmission Date: 20240716
  Serious: Yes (Other)
  Sender: FDA-Public Use
  Company Number: IN-CIPLA LTD.-2024IN05353

PATIENT

DRUGS (10)
  1. SPIRONOLACTONE\TORSEMIDE [Suspect]
     Active Substance: SPIRONOLACTONE\TORSEMIDE
     Indication: Product used for unknown indication
     Dosage: DOSE USED 1/2 (UNITS UNSPECIFIED), FREQUENCY 1 (UNITS UNSPECIFIED)
     Route: 048
     Dates: start: 20240418
  2. AMLODIPINE BESYLATE\TELMISARTAN [Suspect]
     Active Substance: AMLODIPINE BESYLATE\TELMISARTAN
     Indication: Product used for unknown indication
     Dosage: DOSE USED 1 (UNITS UNSPECIFIED), FREQUENCY 1 (UNITS UNSPECIFIED)
     Route: 048
     Dates: start: 20240418
  3. METOPROLOL SUCCINATE [Suspect]
     Active Substance: METOPROLOL SUCCINATE
     Indication: Product used for unknown indication
     Dosage: DOSE USED 1 (UNITS UNSPECIFIED), FREQUENCY 1 (UNITS UNSPECIFIED)
     Route: 048
     Dates: start: 20240418
  4. DEPLATT-A [Concomitant]
     Indication: Product used for unknown indication
     Dosage: 1 DOSAGE FORM, QD (75/25 MG, OD)
     Route: 065
     Dates: start: 20240418
  5. ATORVASTATIN [Concomitant]
     Active Substance: ATORVASTATIN
     Indication: Product used for unknown indication
     Dosage: 40 MILLIGRAM, QD
     Route: 065
     Dates: start: 20240418
  6. ANGISPAN TR [Concomitant]
     Indication: Product used for unknown indication
     Dosage: 6.5 MILLIGRAM, BID
     Route: 065
     Dates: start: 20240418
  7. NICORANDIL [Concomitant]
     Active Substance: NICORANDIL
     Indication: Product used for unknown indication
     Dosage: 5 MILLIGRAM, BID
     Route: 065
     Dates: start: 20240418
  8. TRIMETAZIDINE [Concomitant]
     Active Substance: TRIMETAZIDINE
     Indication: Product used for unknown indication
     Dosage: 35 MILLIGRAM, BID
     Route: 065
     Dates: start: 20240418
  9. RANCV [Concomitant]
     Indication: Product used for unknown indication
     Dosage: 500 MILLIGRAM, BID
     Route: 065
     Dates: start: 20240418
  10. PANTOPRAZOLE SODIUM [Concomitant]
     Active Substance: PANTOPRAZOLE SODIUM
     Indication: Product used for unknown indication
     Dosage: 40 MILLIGRAM, QD
     Route: 065
     Dates: start: 20240418

REACTIONS (1)
  - Asthenia [Not Recovered/Not Resolved]

NARRATIVE: CASE EVENT DATE: 20240418
